FAERS Safety Report 22959220 (Version 3)
Quarter: 2023Q4

REPORT INFORMATION
  Report Type: Spontaneous
  Country: US (occurrence: US)
  Receive Date: 20230920
  Receipt Date: 20231030
  Transmission Date: 20240110
  Serious: No
  Sender: FDA-Public Use
  Company Number: US-AMGEN-USASP2023166140

PATIENT
  Age: 74 Year
  Sex: Female
  Weight: 66.67 kg

DRUGS (3)
  1. REPATHA [Suspect]
     Active Substance: EVOLOCUMAB
     Indication: Blood cholesterol abnormal
     Dosage: 140 MILLIGRAM, Q2WK
     Route: 058
  2. REPATHA [Suspect]
     Active Substance: EVOLOCUMAB
     Indication: Hypertriglyceridaemia
  3. REPATHA [Suspect]
     Active Substance: EVOLOCUMAB
     Indication: Lipodystrophy acquired

REACTIONS (5)
  - Product preparation error [Unknown]
  - Drug dose omission by device [Unknown]
  - Device use error [Unknown]
  - Incorrect disposal of product [Unknown]
  - Device difficult to use [Unknown]

NARRATIVE: CASE EVENT DATE: 20230918
